FAERS Safety Report 9198416 (Version 2)
Quarter: 2013Q2

REPORT INFORMATION
  Report Type: Spontaneous
  Country: US (occurrence: US)
  Receive Date: 20130329
  Receipt Date: 20130419
  Transmission Date: 20140414
  Serious: Yes (Hospitalization, Other)
  Sender: FDA-Public Use
  Company Number: US-AMGEN-USASP2013019905

PATIENT
  Age: 77 Year
  Sex: Female
  Weight: 64.85 kg

DRUGS (2)
  1. PROLIA [Suspect]
     Indication: OSTEOPOROSIS POSTMENOPAUSAL
     Dosage: UNK
     Route: 058
     Dates: start: 20121127, end: 20121127
  2. CORTICOSTEROID NOS [Concomitant]
     Indication: CHRONIC OBSTRUCTIVE PULMONARY DISEASE

REACTIONS (4)
  - Diverticulitis [Recovering/Resolving]
  - Clostridium difficile colitis [Recovering/Resolving]
  - Abdominal abscess [Unknown]
  - Diverticulum [Unknown]
